FAERS Safety Report 17575757 (Version 1)
Quarter: 2020Q1

REPORT INFORMATION
  Report Type: Spontaneous
  Country: JP (occurrence: JP)
  Receive Date: 20200324
  Receipt Date: 20200324
  Transmission Date: 20200409
  Serious: Yes (Life-Threatening, Other)
  Sender: FDA-Public Use
  Company Number: JP-PFIZER INC-2019557619

PATIENT
  Age: 81 Year
  Sex: Male
  Weight: 48 kg

DRUGS (14)
  1. LIXIANA OD [Concomitant]
     Active Substance: EDOXABAN TOSYLATE
     Indication: PERIPHERAL ARTERIAL OCCLUSIVE DISEASE
     Dosage: 30 MG, 1X/DAY
     Route: 048
     Dates: start: 20190915
  2. PLAVIX [Concomitant]
     Active Substance: CLOPIDOGREL BISULFATE
     Indication: ANGINA PECTORIS
     Dosage: 75 MG, 1X/DAY
     Route: 048
  3. SPIROPENT [Concomitant]
     Active Substance: CLENBUTEROL HYDROCHLORIDE
     Dosage: 10 UG, 2X/DAY
     Route: 048
  4. MINOMYCIN [Concomitant]
     Active Substance: MINOCYCLINE HYDROCHLORIDE
     Indication: WOUND INFECTION
     Dosage: 50 MG, 2X/DAY
     Route: 048
     Dates: start: 20191106
  5. CARBOCISTEINE [Concomitant]
     Active Substance: CARBOCYSTEINE
     Dosage: 250 MG, 3X/DAY
     Route: 048
  6. SOLANTAL [Concomitant]
     Active Substance: TIARAMIDE
     Dosage: 50 MG, 3X/DAY
     Route: 048
  7. ZYVOX [Suspect]
     Active Substance: LINEZOLID
     Dosage: 600 MG, 1X/DAY
     Route: 048
     Dates: start: 20191226, end: 20191230
  8. PLETAAL [Concomitant]
     Active Substance: CILOSTAZOL
     Indication: PERIPHERAL ARTERIAL OCCLUSIVE DISEASE
     Dosage: 100 MG, 2X/DAY
     Route: 048
     Dates: start: 20190924
  9. PARIET [Concomitant]
     Active Substance: RABEPRAZOLE SODIUM
     Dosage: 10 MG, 1X/DAY
     Route: 048
  10. LINEZOLID. [Suspect]
     Active Substance: LINEZOLID
     Indication: WOUND INFECTION STAPHYLOCOCCAL
     Dosage: 600 MG, 1X/DAY
     Route: 048
     Dates: start: 20191231, end: 20200105
  11. HOKUNALIN [TULOBUTEROL HYDROCHLORIDE] [Concomitant]
     Dosage: 2 MG (2 PATCHES), 1X/DAY
     Route: 062
  12. MAGMITT [Concomitant]
     Active Substance: MAGNESIUM OXIDE
     Dosage: 660 MG, 1X/DAY
     Route: 048
  13. ZYVOX [Suspect]
     Active Substance: LINEZOLID
     Indication: WOUND INFECTION STAPHYLOCOCCAL
     Dosage: 600 MG, 2X/DAY (IN THE MORNING AND AT NIGHT)
     Route: 048
     Dates: start: 20191218, end: 20191225
  14. LIPITOR [Concomitant]
     Active Substance: ATORVASTATIN CALCIUM
     Dosage: 10 MG, 1X/DAY
     Route: 048

REACTIONS (7)
  - Disease recurrence [Unknown]
  - Bone marrow failure [Unknown]
  - Pyrexia [Unknown]
  - C-reactive protein increased [Unknown]
  - Off label use [Unknown]
  - Pancytopenia [Unknown]
  - Blood creatinine decreased [Recovered/Resolved]

NARRATIVE: CASE EVENT DATE: 20191226
